FAERS Safety Report 8586819-4 (Version None)
Quarter: 2012Q3

REPORT INFORMATION
  Report Type: 
  Country: None (occurrence: None)
  Receive Date: 20120810
  Receipt Date: 20120807
  Transmission Date: 20120928
  Serious: Yes (Life-Threatening, Hospitalization, Disabling)
  Sender: FDA-Public Use
  Company Number: JP-B.I. PHARMACEUTICALS,INC./RIDGEFIELD-2012-BP-14254NB

PATIENT
  Age: 70 Year
  Sex: Male
  Weight: 70.3 kg

DRUGS (16)
  1. LANSOPRAZOLE [Concomitant]
     Dosage: 30 MG
     Route: 048
  2. DOBUPUM [Concomitant]
     Route: 042
  3. CEFOTIAM HYDROCHLORIDE [Concomitant]
     Dosage: 2 G
     Route: 042
  4. HANP [Concomitant]
     Route: 042
  5. LASIX [Concomitant]
     Dosage: 240 MG
     Route: 042
  6. ASPIRIN [Suspect]
     Indication: MYOCARDIAL INFARCTION
     Dosage: 100 MG
     Route: 065
     Dates: end: 20120622
  7. AMIODARONE HYDROCHLORIDE [Concomitant]
     Dosage: 200 MG
     Route: 048
  8. FENTANYL [Concomitant]
     Route: 042
  9. PLAVIX [Suspect]
     Indication: MYOCARDIAL INFARCTION
     Dosage: 75 MG
     Route: 065
     Dates: end: 20120622
  10. PRADAXA [Suspect]
     Dosage: 220 MG
     Route: 065
     Dates: start: 20120601, end: 20120622
  11. PRADAXA [Suspect]
     Indication: ATRIAL FIBRILLATION
     Dosage: 300 MG
     Route: 048
     Dates: start: 20111101, end: 20120622
  12. HEPARIN [Suspect]
     Route: 065
     Dates: end: 20120622
  13. LIPITOR [Concomitant]
     Dosage: 10 MG
     Route: 048
  14. SOLDACTONE [Concomitant]
     Dosage: 100 MG
     Route: 042
  15. MILRINONE LACTATE [Concomitant]
     Route: 042
  16. DIPRIVAN [Concomitant]
     Route: 042

REACTIONS (6)
  - CARDIOGENIC SHOCK [None]
  - HAEMORRHAGIC CEREBRAL INFARCTION [None]
  - ACUTE MYOCARDIAL INFARCTION [None]
  - HEPATIC FUNCTION ABNORMAL [None]
  - HAEMATOCHEZIA [None]
  - CARDIAC FAILURE ACUTE [None]
